FAERS Safety Report 5928299-0 (Version None)
Quarter: 2008Q4

REPORT INFORMATION
  Report Type: 
  Country: None (occurrence: None)
  Receive Date: 20081022
  Receipt Date: 20081022
  Transmission Date: 20090506
  Serious: Yes (Life-Threatening, Hospitalization)
  Sender: FDA-Public Use
  Company Number: None

PATIENT
  Age: 61 Year
  Sex: Female

DRUGS (17)
  1. PROTAMINE SULFATE [Suspect]
     Indication: HEPARIN NEUTRALISATION THERAPY
     Dosage: 15 MG ONCE IV
     Route: 042
     Dates: start: 20080215, end: 20080215
  2. LOSARTAN POTASSIUM [Concomitant]
  3. LISINOPRIL [Concomitant]
  4. ALENDRONATE SODIUM [Concomitant]
  5. METOPROLOL TARTRATE SR [Concomitant]
  6. FUROSEMIDE [Concomitant]
  7. POTASSIUM CHLORIDE [Concomitant]
  8. HYDROCODONE/APAP [Concomitant]
  9. CLOPIDOGREL [Concomitant]
  10. TEMAZEPAM [Concomitant]
  11. LABUTEROL MDI [Concomitant]
  12. CELECOXIB [Concomitant]
  13. MONTELUKAST SODIUM [Concomitant]
  14. ACETAMINOPHEN [Suspect]
  15. SIMVASTATIN [Concomitant]
  16. AMLODIPINE [Concomitant]
  17. OYSTERSHELL CALCIUM [Concomitant]

REACTIONS (3)
  - DYSPNOEA [None]
  - OXYGEN SATURATION DECREASED [None]
  - RESPIRATORY DISTRESS [None]
